FAERS Safety Report 12883381 (Version 2)
Quarter: 2016Q4

REPORT INFORMATION
  Report Type: Report from Study
  Country: DE (occurrence: DE)
  Receive Date: 20161025
  Receipt Date: 20161101
  Transmission Date: 20170207
  Serious: Yes (Other)
  Sender: FDA-Public Use
  Company Number: DE-GILEAD-2016-0239585

PATIENT
  Age: 27 Year
  Sex: Male

DRUGS (3)
  1. HEPSERA [Suspect]
     Active Substance: ADEFOVIR DIPIVOXIL
     Indication: PRODUCT USED FOR UNKNOWN INDICATION
     Route: 065
  2. PEGINTERFERON ALFA-2A [Suspect]
     Active Substance: PEGINTERFERON ALFA-2A
     Indication: CHRONIC HEPATITIS B
     Dosage: 180 ?G, WE
     Route: 058
     Dates: start: 20100115, end: 20101217
  3. TENOFOVIR DISOPROXIL FUMARATE. [Suspect]
     Active Substance: TENOFOVIR DISOPROXIL FUMARATE
     Indication: PRODUCT USED FOR UNKNOWN INDICATION
     Route: 065

REACTIONS (1)
  - Myosclerosis [Recovered/Resolved]

NARRATIVE: CASE EVENT DATE: 20130421
